FAERS Safety Report 21925260 (Version 2)
Quarter: 2023Q1

REPORT INFORMATION
  Report Type: Other
  Country: DE (occurrence: DE)
  Receive Date: 20230130
  Receipt Date: 20230330
  Transmission Date: 20230418
  Serious: Yes (Other)
  Sender: FDA-Public Use
  Company Number: DE-GLENMARK PHARMACEUTICALS-2023GMK077902

PATIENT

DRUGS (3)
  1. ZONISAMIDE [Suspect]
     Active Substance: ZONISAMIDE
     Indication: Epilepsy
     Dosage: 475 MILLIGRAM, QD (225-0-250), 0. - 41.2. GESTATIONAL WEEK
     Route: 064
     Dates: start: 20210516, end: 20220301
  2. PERAMPANEL [Suspect]
     Active Substance: PERAMPANEL
     Indication: Epilepsy
     Dosage: 6 MILLIGRAM, QD (0. - 41.2. GESTATIONAL WEEK)
     Route: 064
     Dates: start: 20210516, end: 20220301
  3. FOLIC ACID [Concomitant]
     Active Substance: FOLIC ACID
     Indication: Prophylaxis of neural tube defect
     Dosage: 5 MILLIGRAM, QD
     Route: 064
     Dates: start: 20210516, end: 20220301

REACTIONS (2)
  - Small for dates baby [Unknown]
  - Foetal exposure during pregnancy [Unknown]

NARRATIVE: CASE EVENT DATE: 20220301
